FAERS Safety Report 6500578-8 (Version None)
Quarter: 2009Q4

REPORT INFORMATION
  Report Type: 
  Country: None (occurrence: None)
  Receive Date: 20091216
  Receipt Date: 20081118
  Transmission Date: 20100525
  Serious: No
  Sender: FDA-Public Use
  Company Number: A0757191A

PATIENT
  Age: 47 Year
  Sex: Female

DRUGS (2)
  1. COMMIT [Suspect]
     Dates: end: 20081117
  2. NICORETTE [Suspect]

REACTIONS (2)
  - MOUTH HAEMORRHAGE [None]
  - ORAL DISCOMFORT [None]
